FAERS Safety Report 20862446 (Version 2)
Quarter: 2022Q3

REPORT INFORMATION
  Report Type: Spontaneous
  Country: US (occurrence: US)
  Receive Date: 20220523
  Receipt Date: 20220708
  Transmission Date: 20221027
  Serious: No
  Sender: FDA-Public Use
  Company Number: US-SUNOVION-2022SUN001577

PATIENT
  Age: 78 Year
  Sex: Female

DRUGS (6)
  1. KYNMOBI [Suspect]
     Active Substance: APOMORPHINE HYDROCHLORIDE
     Indication: Parkinson^s disease
     Dosage: 10 MG(EVERY 2 HOURS UP TO 5 TIMES PER DAY AS NEEDED)
     Route: 060
  2. KYNMOBI [Suspect]
     Active Substance: APOMORPHINE HYDROCHLORIDE
     Dosage: 20 MG(EVERY 2 HOURS UP TO 5 TIMES PER DAY AS NEEDED)
     Route: 060
  3. KYNMOBI [Suspect]
     Active Substance: APOMORPHINE HYDROCHLORIDE
     Dosage: 30 MG(EVERY 2 HOURS UP TO 5 TIMES PER DAY AS NEEDED)
     Route: 060
  4. KYNMOBI [Suspect]
     Active Substance: APOMORPHINE HYDROCHLORIDE
     Dosage: 40 MG(EVERY 2 HOURS UP TO 5 TIMES PER DAY AS NEEDED)
     Route: 060
  5. KYNMOBI [Suspect]
     Active Substance: APOMORPHINE HYDROCHLORIDE
     Dosage: 50 MG(EVERY 2 HOURS UP TO 5 TIMES PER DAY AS NEEDED)
     Route: 060
  6. KYNMOBI [Suspect]
     Active Substance: APOMORPHINE HYDROCHLORIDE
     Dosage: 15 MG
     Route: 060
     Dates: start: 20220705

REACTIONS (3)
  - Orthostatic hypertension [Unknown]
  - Headache [Unknown]
  - Orthostatic hypotension [Unknown]

NARRATIVE: CASE EVENT DATE: 20220513
